FAERS Safety Report 15966859 (Version 1)
Quarter: 2019Q1

REPORT INFORMATION
  Report Type: Spontaneous
  Country: FR (occurrence: FR)
  Receive Date: 20190215
  Receipt Date: 20190215
  Transmission Date: 20190418
  Serious: Yes (Other)
  Sender: FDA-Public Use
  Company Number: FR-009507513-1902FRA003925

PATIENT
  Age: 48 Year
  Sex: Female

DRUGS (2)
  1. IMPLANON [Suspect]
     Active Substance: ETONOGESTREL
     Indication: CONTRACEPTION
     Dosage: IMPLANT
     Route: 059
  2. IMPLANON [Suspect]
     Active Substance: ETONOGESTREL
     Dosage: IMPLANT; RIGHT ARM; 2ND IMPLANT
     Route: 059
     Dates: start: 20051122

REACTIONS (8)
  - Complication of device removal [Not Recovered/Not Resolved]
  - Incorrect product administration duration [Unknown]
  - Diabetes mellitus [Unknown]
  - Complication associated with device [Not Recovered/Not Resolved]
  - Product use issue [Unknown]
  - Device deployment issue [Not Recovered/Not Resolved]
  - Weight decreased [Unknown]
  - Gastric bypass [Unknown]

NARRATIVE: CASE EVENT DATE: 20051122
